FAERS Safety Report 5135174-0 (Version None)
Quarter: 2006Q4

REPORT INFORMATION
  Report Type: 
  Country: None (occurrence: None)
  Receive Date: 20061026
  Receipt Date: 20061019
  Transmission Date: 20070319
  Serious: Yes (Life-Threatening)
  Sender: FDA-Public Use
  Company Number: PHBS2006DK16214

PATIENT
  Sex: Female

DRUGS (1)
  1. VOLTAREN [Suspect]
     Indication: ARTERIOSCLEROSIS
     Route: 048
     Dates: start: 20041119, end: 20060920

REACTIONS (2)
  - ANGINA PECTORIS [None]
  - STENT PLACEMENT [None]
